FAERS Safety Report 5305552-5 (Version None)
Quarter: 2007Q2

REPORT INFORMATION
  Report Type: 
  Country: None (occurrence: None)
  Receive Date: 20070424
  Receipt Date: 20070413
  Transmission Date: 20071010
  Serious: Yes (Life-Threatening, Hospitalization, Other)
  Sender: FDA-Public Use
  Company Number: HQWYE550213APR07

PATIENT
  Age: 77 Year
  Sex: Female

DRUGS (2)
  1. CORDARONE [Suspect]
     Indication: ATRIAL FIBRILLATION
     Dosage: UNKNOWN
     Dates: start: 20061201, end: 20070226
  2. PREVISCAN [Concomitant]
     Indication: ATRIAL FIBRILLATION
     Dosage: UNKNOWN
     Dates: start: 20061201

REACTIONS (3)
  - INTERSTITIAL LUNG DISEASE [None]
  - METABOLIC ALKALOSIS [None]
  - RENAL FAILURE [None]
